FAERS Safety Report 4414655-9 (Version None)
Quarter: 2004Q3

REPORT INFORMATION
  Report Type: 
  Country: None (occurrence: None)
  Receive Date: 20040729
  Receipt Date: 20040719
  Transmission Date: 20050211
  Serious: Yes (Hospitalization)
  Sender: FDA-Public Use
  Company Number: 2004048733

PATIENT
  Sex: Female
  Weight: 58.9676 kg

DRUGS (1)
  1. KAOPECTATE (ATTAPULGITE) [Suspect]
     Indication: CROHN'S DISEASE
     Dosage: 1/2 BOTTLE EVERY WEEK AS NEEDED, ORAL
     Route: 048
     Dates: start: 19500101

REACTIONS (2)
  - NEOPLASM PROGRESSION [None]
  - UTERINE CANCER [None]
